FAERS Safety Report 8251953-5 (Version None)
Quarter: 2012Q2

REPORT INFORMATION
  Report Type: 
  Country: None (occurrence: None)
  Receive Date: 20120402
  Receipt Date: 20120320
  Transmission Date: 20120825
  Serious: Yes (Other)
  Sender: FDA-Public Use
  Company Number: CHPA2012US005685

PATIENT
  Sex: Female

DRUGS (1)
  1. TRANSDERM SCOP [Suspect]
     Dosage: 1 PATCH, FOR 3 HOURS
     Route: 062
     Dates: start: 20120218

REACTIONS (3)
  - APHONIA [None]
  - ABASIA [None]
  - SENSORY DISTURBANCE [None]
